FAERS Safety Report 8183967-8 (Version None)
Quarter: 2012Q1

REPORT INFORMATION
  Report Type: 
  Country: None (occurrence: None)
  Receive Date: 20120305
  Receipt Date: 20120224
  Transmission Date: 20120608
  Serious: Yes (Other)
  Sender: FDA-Public Use
  Company Number: US-ROCHE-798728

PATIENT
  Sex: Male
  Weight: 81.72 kg

DRUGS (2)
  1. ACCUTANE [Suspect]
     Route: 065
     Dates: start: 20020101, end: 20020501
  2. ACCUTANE [Suspect]
     Indication: ACNE
     Route: 065
     Dates: start: 19990101, end: 20010101

REACTIONS (9)
  - INTESTINAL HAEMORRHAGE [None]
  - CROHN'S DISEASE [None]
  - RECTAL ABSCESS [None]
  - INTESTINAL OBSTRUCTION [None]
  - ANAL FISTULA [None]
  - INFLAMMATORY BOWEL DISEASE [None]
  - ANXIETY [None]
  - COLITIS ULCERATIVE [None]
  - IRRITABLE BOWEL SYNDROME [None]
